FAERS Safety Report 24157432 (Version 1)
Quarter: 2024Q3

REPORT INFORMATION
  Report Type: Spontaneous
  Country: US (occurrence: US)
  Receive Date: 20240731
  Receipt Date: 20240731
  Transmission Date: 20241016
  Serious: No
  Sender: PFIZER
  Company Number: US-PFIZER INC-PV202400098227

PATIENT
  Age: 41 Year
  Sex: Female

DRUGS (2)
  1. TUKYSA [Interacting]
     Active Substance: TUCATINIB
     Dosage: 300 MG, 2X/DAY (150MG, 2 TABLETS TWICE A DAY)
  2. METHADONE [Interacting]
     Active Substance: METHADONE HYDROCHLORIDE
     Dosage: UNK

REACTIONS (1)
  - Drug interaction [Unknown]
